FAERS Safety Report 6440215-4 (Version None)
Quarter: 2009Q4

REPORT INFORMATION
  Report Type: 
  Country: None (occurrence: None)
  Receive Date: 20091113
  Receipt Date: 20091112
  Transmission Date: 20100525
  Serious: Yes (Hospitalization, Other)
  Sender: FDA-Public Use
  Company Number: GB-PFIZER INC-2009275308

PATIENT
  Sex: Male

DRUGS (2)
  1. DALACIN [Suspect]
     Dosage: UNK
     Route: 042
  2. DALACIN [Suspect]
     Route: 048

REACTIONS (1)
  - RENAL FAILURE [None]
